FAERS Safety Report 14747138 (Version 2)
Quarter: 2020Q1

REPORT INFORMATION
  Report Type: Spontaneous
  Country: US (occurrence: US)
  Receive Date: 20180411
  Receipt Date: 20200107
  Transmission Date: 20200409
  Serious: Yes (Other)
  Sender: FDA-Public Use
  Company Number: US-ELI_LILLY_AND_COMPANY-US201804002308

PATIENT
  Age: 81 Year
  Sex: Male

DRUGS (3)
  1. HUMALOG [Suspect]
     Active Substance: INSULIN LISPRO
     Indication: TYPE 2 DIABETES MELLITUS
     Dosage: 5 U, UNKNOWN
     Route: 058
     Dates: start: 20160315, end: 2017
  2. METFORMIN [Suspect]
     Active Substance: METFORMIN HYDROCHLORIDE
     Indication: TYPE 2 DIABETES MELLITUS
  3. HUMALOG [Suspect]
     Active Substance: INSULIN LISPRO
     Dosage: UNK, UNKNOWN
     Route: 058
     Dates: start: 20180104

REACTIONS (7)
  - Blood glucose fluctuation [Unknown]
  - Renal disorder [Unknown]
  - Hypoacusis [Not Recovered/Not Resolved]
  - Blood glucose decreased [Unknown]
  - Ear disorder [Not Recovered/Not Resolved]
  - Night sweats [Unknown]
  - Device issue [Not Recovered/Not Resolved]
